FAERS Safety Report 6605175-1 (Version None)
Quarter: 2010Q1

REPORT INFORMATION
  Report Type: 
  Country: None (occurrence: None)
  Receive Date: 20100226
  Receipt Date: 20100217
  Transmission Date: 20100710
  Serious: Yes (Hospitalization)
  Sender: FDA-Public Use
  Company Number: FR-ABBOTT-10P-056-0627102-02

PATIENT
  Age: 45 Year
  Sex: Female
  Weight: 62 kg

DRUGS (2)
  1. HUMIRA [Suspect]
     Indication: CROHN'S DISEASE
     Route: 058
     Dates: start: 20070130
  2. HUMIRA [Suspect]
     Route: 058
     Dates: start: 20100106

REACTIONS (3)
  - COUGH [None]
  - DYSPNOEA [None]
  - PRODUCTIVE COUGH [None]
